FAERS Safety Report 23586489 (Version 3)
Quarter: 2024Q2

REPORT INFORMATION
  Report Type: Other
  Country: US (occurrence: US)
  Receive Date: 20240301
  Receipt Date: 20240512
  Transmission Date: 20240716
  Serious: No
  Sender: FDA-Public Use
  Company Number: US-TRAVERE-2024TVT00204

PATIENT
  Sex: Male

DRUGS (1)
  1. FILSPARI [Suspect]
     Active Substance: SPARSENTAN
     Indication: IgA nephropathy
     Route: 048
     Dates: start: 20240209

REACTIONS (6)
  - Pruritus [Unknown]
  - Hypotension [Unknown]
  - Peripheral swelling [Unknown]
  - Swelling face [Unknown]
  - Erythema [Unknown]
  - Hypersensitivity [Unknown]
